FAERS Safety Report 7033523-X (Version None)
Quarter: 2010Q4

REPORT INFORMATION
  Report Type: 
  Country: None (occurrence: None)
  Receive Date: 20101007
  Receipt Date: 20100923
  Transmission Date: 20110411
  Serious: Yes (Hospitalization)
  Sender: FDA-Public Use
  Company Number: PHHY2010VE64030

PATIENT
  Sex: Male

DRUGS (6)
  1. DIOVAN [Suspect]
     Indication: HYPERTENSION
     Dosage: TABLET (160 MG)
     Dates: start: 20080101
  2. DIOVAN [Suspect]
     Dosage: 80 MG
  3. DILATREND [Concomitant]
     Dosage: 6.25 MG, UNK
  4. PLAVIX [Concomitant]
     Dosage: 75 MG, ONCE A DAY
  5. TRANGOREX [Concomitant]
     Dosage: 200 MG, ONCE A DAY
  6. LASIX [Concomitant]
     Dosage: 20 MG, ONCE A DAY

REACTIONS (2)
  - CARDIAC PACEMAKER REPLACEMENT [None]
  - HYPOTENSION [None]
